FAERS Safety Report 8999685 (Version 1)
Quarter: 2013Q1

REPORT INFORMATION
  Report Type: Spontaneous
  Country: US (occurrence: US)
  Receive Date: 20130102
  Receipt Date: 20130102
  Transmission Date: 20140127
  Serious: No
  Sender: FDA-Public Use
  Company Number: US-BAYER-2013-000050

PATIENT
  Age: 85 Year
  Sex: Female
  Weight: 90.7 kg

DRUGS (6)
  1. ALEVE CAPLET/TABLET,MIDOL EXTENDED RELIEF CAPLET [Suspect]
     Indication: BACK PAIN
     Dosage: 1 DF, BID
     Route: 048
     Dates: start: 20121213, end: 20121224
  2. LIPITOR [Concomitant]
  3. SYNTHROID [Concomitant]
  4. BAYER ASPIRIN FAST RELEASE POWDER [Concomitant]
     Dosage: 81 MG, UNK
  5. VERAPAMIL [Concomitant]
  6. TYLENOL [Concomitant]

REACTIONS (2)
  - Incorrect drug administration duration [None]
  - Skin discolouration [None]
